FAERS Safety Report 10273216 (Version 2)
Quarter: 2015Q3

REPORT INFORMATION
  Report Type: Report from Study
  Country: US (occurrence: US)
  Receive Date: 20140702
  Receipt Date: 20150820
  Transmission Date: 20151125
  Serious: Yes (Death, Hospitalization)
  Sender: FDA-Public Use
  Company Number: PHHY2014US078200

PATIENT
  Age: 55 Year
  Sex: Female
  Weight: 51.25 kg

DRUGS (7)
  1. NO TREATMENT RECEIVED [Suspect]
     Active Substance: UNSPECIFIED INGREDIENT
     Indication: PRODUCT USED FOR UNKNOWN INDICATION
     Route: 065
  2. 5-FLUOROURACIL [Suspect]
     Active Substance: FLUOROURACIL
     Indication: COLON CANCER
     Dosage: 1600 MG/M2, ONE PER TWO WEEK
     Route: 042
     Dates: start: 20110907, end: 20120222
  3. 5-FLUOROURACIL [Suspect]
     Active Substance: FLUOROURACIL
     Dosage: 270 MG/M2
     Route: 040
     Dates: start: 20110907, end: 20120222
  4. BEVACIZUMAB [Suspect]
     Active Substance: BEVACIZUMAB
     Indication: COLON CANCER
     Dosage: 2.5 MG/KG, EVERY WEEK
     Route: 042
     Dates: start: 20110907, end: 20120222
  5. LEUCOVORIN CALCIUM. [Suspect]
     Active Substance: LEUCOVORIN CALCIUM
     Indication: COLON CANCER
     Dosage: 400 MG/M2
     Route: 065
     Dates: start: 20110907
  6. LEUCOVORIN CALCIUM. [Suspect]
     Active Substance: LEUCOVORIN CALCIUM
     Dosage: 200 MG/M2, UNK
     Route: 065
  7. OXALIPLATIN. [Suspect]
     Active Substance: OXALIPLATIN
     Indication: COLON CANCER
     Dosage: 50 MG/M2, ONE PER TWO WEEK
     Route: 042
     Dates: start: 20110907, end: 20120222

REACTIONS (11)
  - Neutropenia [Unknown]
  - Thrombocytopenia [Unknown]
  - Septic shock [Fatal]
  - Mucosal inflammation [Unknown]
  - Respiratory distress [Fatal]
  - Fatigue [Unknown]
  - Asthenia [Unknown]
  - Pneumonia [Unknown]
  - Pancytopenia [Fatal]
  - Oropharyngeal pain [Unknown]
  - Dehydration [Fatal]

NARRATIVE: CASE EVENT DATE: 20120222
